FAERS Safety Report 24704688 (Version 5)
Quarter: 2025Q4

REPORT INFORMATION
  Report Type: Spontaneous
  Country: EU (occurrence: EU)
  Receive Date: 20241206
  Receipt Date: 20251105
  Transmission Date: 20260117
  Serious: Yes (Hospitalization, Other)
  Sender: BRISTOL-MYERS SQUIBB COMPANY
  Company Number: EU-ROCHE-10000135007

PATIENT
  Age: 41 Year
  Sex: Female
  Weight: 92 kg

DRUGS (19)
  1. PACLITAXEL [Suspect]
     Active Substance: PACLITAXEL
     Indication: Triple negative breast cancer
     Dosage: ON 20/JUN/2024, SHE HAD LAST DOSE ADMINISTERED BEFORE SAE WAS 200 MG.?CUMULATIVE DOSE SINCE 1ST ADMINISTRATION WAS 2000 MG.
  2. PACLITAXEL [Suspect]
     Active Substance: PACLITAXEL
     Dosage: ON 20/JUN/2024, SHE HAD LAST DOSE ADMINISTERED BEFORE SAE WAS 200 MG.?CUMULATIVE DOSE SINCE 1ST ADMINISTRATION WAS 2000 MG.
  3. TIRAGOLUMAB [Suspect]
     Active Substance: TIRAGOLUMAB
     Indication: Triple negative breast cancer
     Dosage: ON 23/OCT/2024 SHE RECEIVED LAST DOSE OF TIRAGOLUMAB PRIOR TO EVENT.?ON 21/OCT/2024, SHE RECEIVED LAST DOSE BEFORE AE ONSET WAS 600 MG. CUMULATIVE DOSE SINCE 1ST ADMINISTERED AS 5400 MG.?INCLUSION IN THE SKYLINE TRIAL: 4 CYCLES OF CARBOPLATIN TAXOL + ATEZOLIZUMAB + TIRAGOLUMAB THEN 4 CYCLES OF AC +
     Route: 042
  4. TIRAGOLUMAB [Suspect]
     Active Substance: TIRAGOLUMAB
     Dosage: ON 21/OCT/2024, SHE RECEIVED LAST DOSE BEFORE AE ONSET WAS 600 MG.
     Route: 042
  5. TIRAGOLUMAB [Suspect]
     Active Substance: TIRAGOLUMAB
     Dosage: ON 23/OCT/2024 SHE RECEIVED LAST DOSE OF TIRAGOLUMAB PRIOR TO EVENT.?CUMULATIVE DOSE SINCE 1ST ADMINISTERED AS 5400 MG.
     Route: 042
  6. ATEZOLIZUMAB [Suspect]
     Active Substance: ATEZOLIZUMAB
     Indication: Triple negative breast cancer
     Dosage: ON 23/OCT/2024 SHE RECEIVED LAST DOSE OF ATEZOLIZUMAB PRIOR TO EVENT.?ON 24/NOV/2024, SHE HAD HER LAST DOSE AS 1200 MG.?CUMULATIVE DOSE SINCE THE 1ST ADMINISTERED AS 800 MG.?INCLUSION IN THE SKYLINE TRIAL: 4 CYCLES OF CARBOPLATIN TAXOL + ATEZOLIZUMAB + TIRAGOLUMAB THEN 4 CYCLES OF AC + ATEZOLIZUMAB
     Route: 042
  7. ATEZOLIZUMAB [Suspect]
     Active Substance: ATEZOLIZUMAB
     Dosage: ON 23/OCT/2024 SHE RECEIVED LAST DOSE OF ATEZOLIZUMAB PRIOR TO EVENT.
     Route: 042
  8. ATEZOLIZUMAB [Suspect]
     Active Substance: ATEZOLIZUMAB
     Dosage: ON 24/NOV/2024, SHE HAD HER LAST DOSE AS 1200 MG.?CUMULATIVE DOSE SINCE THE 1ST ADMINISTERED AS 800 MG.
     Route: 042
  9. PEMBROLIZUMAB [Suspect]
     Active Substance: PEMBROLIZUMAB
     Indication: Triple negative breast cancer
  10. CAPECITABINE [Suspect]
     Active Substance: CAPECITABINE
     Indication: Triple negative breast cancer
     Dosage: DATE OF LAST ADMINISTERED 13/NOV/2024
     Dates: start: 20241104, end: 20241113
  11. CARBOPLATIN [Suspect]
     Active Substance: CARBOPLATIN
     Indication: Triple negative breast cancer
     Dosage: ON 06/JUN/2024, SHE HAD LAST DOSE ADMINISTERED PRIOR TO SAE WAS 660 MG.?CUMULATIVE FREQUENCY SINCE 1ST ADMINISTERED AS 2640 MG.?INCLUSION IN THE SKYLINE TRIAL: 4 CYCLES OF CARBOPLATIN TAXOL + ATEZOLIZUMAB + TIRAGOLUMAB THEN 4 CYCLES OF AC + ATEZOLIZUMAB + TIRAGOLUMAB RECEIVED  ON 16-APR-2024
  12. CARBOPLATIN [Suspect]
     Active Substance: CARBOPLATIN
     Dosage: ON 06/JUN/2024, SHE HAD LAST DOSE ADMINISTERED PRIOR TO SAE WAS 660 MG.?CUMULATIVE FREQUENCY SINCE 1ST ADMINISTERED AS 2640 MG.
  13. DOXORUBICIN [Suspect]
     Active Substance: DOXORUBICIN
     Indication: Triple negative breast cancer
     Dosage: ON 03/SEP/2024, SHE HAD LAST DOSE ADMINISTERED AS 60 MG.?CUMULATIVE DOSE SINCE THE 1ST ADMINISTERED AS 240 MG.
  14. DOXORUBICIN [Suspect]
     Active Substance: DOXORUBICIN
     Dosage: ON 03/SEP/2024, SHE HAD LAST DOSE ADMINISTERED AS 60 MG.?CUMULATIVE DOSE SINCE THE 1ST ADMINISTERED AS 240 MG.
  15. CYCLOPHOSPHAMIDE [Suspect]
     Active Substance: CYCLOPHOSPHAMIDE
     Indication: Triple negative breast cancer
     Dosage: ON 03/SEP/2024, SHE HAD LAST DOSE PRIOR TO SAE WAS 1000 MG.?CUMULATIVE DOSE SINCE 1ST ADMINISTERED WAS 4600 MG.
  16. CYCLOPHOSPHAMIDE [Suspect]
     Active Substance: CYCLOPHOSPHAMIDE
     Dosage: ON 03/SEP/2024, SHE HAD LAST DOSE PRIOR TO SAE WAS 1000 MG.?CUMULATIVE DOSE SINCE 1ST ADMINISTERED WAS 4600 MG.
  17. PAROXETINE [Concomitant]
     Active Substance: PAROXETINE
     Indication: Product used for unknown indication
  18. NEURONTIN [Concomitant]
     Active Substance: GABAPENTIN
     Indication: Product used for unknown indication
  19. PANTOPRAZOLE [Concomitant]
     Active Substance: PANTOPRAZOLE
     Indication: Product used for unknown indication

REACTIONS (1)
  - Myocarditis [Recovered/Resolved]

NARRATIVE: CASE EVENT DATE: 20241107
